FAERS Safety Report 7593782-1 (Version None)
Quarter: 2011Q3

REPORT INFORMATION
  Report Type: 
  Country: None (occurrence: None)
  Receive Date: 20110706
  Receipt Date: 20110623
  Transmission Date: 20111222
  Serious: Yes (Other)
  Sender: FDA-Public Use
  Company Number: PHHY2011CA41652

PATIENT
  Sex: Female

DRUGS (2)
  1. NORVASC [Concomitant]
     Dosage: 10 MG, UNK
  2. ZOLEDRONIC ACID [Suspect]
     Indication: OSTEOPOROSIS
     Dosage: 5 MG/ 100 ML
     Route: 042
     Dates: start: 20100611

REACTIONS (7)
  - RETINAL VEIN THROMBOSIS [None]
  - GINGIVAL ERYTHEMA [None]
  - RETINAL OEDEMA [None]
  - GINGIVITIS [None]
  - RHINITIS [None]
  - EXOSTOSIS [None]
  - GINGIVAL SWELLING [None]
